FAERS Safety Report 4634949-1 (Version None)
Quarter: 2005Q2

REPORT INFORMATION
  Report Type: 
  Country: None (occurrence: None)
  Receive Date: 20050414
  Receipt Date: 20050407
  Transmission Date: 20051028
  Serious: Yes (Other)
  Sender: FDA-Public Use
  Company Number: PHBS2005CA05022

PATIENT
  Sex: Male

DRUGS (1)
  1. RITALIN-SR [Suspect]
     Dosage: 50-60 MG/D
     Route: 048
     Dates: start: 20041001, end: 20050228

REACTIONS (2)
  - DRUG INEFFECTIVE [None]
  - WEIGHT DECREASED [None]
